FAERS Safety Report 18959899 (Version 5)
Quarter: 2022Q2

REPORT INFORMATION
  Report Type: Report from Study
  Country: KR (occurrence: KR)
  Receive Date: 20210302
  Receipt Date: 20220530
  Transmission Date: 20220721
  Serious: Yes (Life-Threatening, Hospitalization, Other)
  Sender: FDA-Public Use
  Company Number: KR-TAKEDA-2021TUS007037

PATIENT
  Age: 80 Year
  Sex: Male
  Weight: 55 kg

DRUGS (7)
  1. BRIGATINIB [Suspect]
     Active Substance: BRIGATINIB
     Indication: Non-small cell lung cancer
     Dosage: 90 MILLIGRAM, QD
     Route: 048
     Dates: start: 20201218, end: 20201224
  2. BRIGATINIB [Suspect]
     Active Substance: BRIGATINIB
     Indication: Squamous cell carcinoma
     Dosage: 180 MILLIGRAM, QD
     Route: 048
     Dates: start: 20201225, end: 20210202
  3. HARNAL [Concomitant]
     Active Substance: TAMSULOSIN HYDROCHLORIDE
     Indication: Benign prostatic hyperplasia
     Dosage: 0.2 MILLIGRAM, QD
     Route: 048
     Dates: start: 20201217, end: 20210222
  4. ENDIS [Concomitant]
     Indication: Pneumoconiosis
     Dosage: 300 MILLIGRAM, QD
     Route: 048
     Dates: start: 20201114
  5. TARABUTINE [Concomitant]
     Indication: Prophylaxis
     Dosage: UNK UNK, QD
     Route: 048
     Dates: start: 20201217
  6. BROMELAINS;DIMETICONE;PANCREATIN [Concomitant]
     Indication: Prophylaxis
     Dosage: UNK UNK, QD
     Route: 048
     Dates: start: 20201221
  7. MEGACE F [Concomitant]
     Indication: Prophylaxis
     Dosage: UNK UNK, QD
     Route: 048
     Dates: start: 20201217

REACTIONS (2)
  - Neuropathy peripheral [Recovered/Resolved]
  - Pneumonia [Recovered/Resolved]

NARRATIVE: CASE EVENT DATE: 20210126
